FAERS Safety Report 5030634-5 (Version None)
Quarter: 2006Q2

REPORT INFORMATION
  Report Type: 
  Country: None (occurrence: None)
  Receive Date: 20060620
  Receipt Date: 20060615
  Transmission Date: 20061013
  Serious: Yes (Other)
  Sender: FDA-Public Use
  Company Number: US-MERCK-0606USA02836

PATIENT
  Age: 22 Year
  Sex: Female

DRUGS (1)
  1. PROPECIA [Suspect]
     Indication: ALOPECIA
     Route: 048
     Dates: start: 20060301

REACTIONS (2)
  - DRUG ADMINISTRATION ERROR [None]
  - OVARIAN CYST [None]
